FAERS Safety Report 7546957-1 (Version None)
Quarter: 2011Q2

REPORT INFORMATION
  Report Type: 
  Country: None (occurrence: None)
  Receive Date: 20110614
  Receipt Date: 20110610
  Transmission Date: 20111010
  Serious: No
  Sender: FDA-Public Use
  Company Number: US-TEVA-285764USA

PATIENT
  Sex: Female

DRUGS (2)
  1. PROAIR HFA [Suspect]
     Indication: COUGH
     Route: 055
     Dates: start: 20101201
  2. BUDESONIDE W/FORMOTEROL FUMARATE [Concomitant]

REACTIONS (3)
  - TINNITUS [None]
  - TREMOR [None]
  - PAROSMIA [None]
